FAERS Safety Report 11790063 (Version 2)
Quarter: 2016Q3

REPORT INFORMATION
  Report Type: Spontaneous
  Country: JP (occurrence: JP)
  Receive Date: 20151201
  Receipt Date: 20160906
  Transmission Date: 20161109
  Serious: Yes (Other)
  Sender: FDA-Public Use
  Company Number: JP-GLAXOSMITHKLINE-JP2015GSK169985

PATIENT
  Age: 48 Year
  Sex: Male

DRUGS (10)
  1. HEPSERA [Interacting]
     Active Substance: ADEFOVIR DIPIVOXIL
     Dosage: 5 MG, QOD
     Route: 048
  2. ZEFIX [Suspect]
     Active Substance: LAMIVUDINE
     Dosage: 100 MG, QD
     Route: 048
     Dates: start: 200001
  3. METHYLPREDNISOLONE. [Concomitant]
     Active Substance: METHYLPREDNISOLONE
     Indication: IMMUNOSUPPRESSION
     Dosage: 500 MG, QD
     Route: 042
  4. HEPSERA [Interacting]
     Active Substance: ADEFOVIR DIPIVOXIL
     Dosage: 2.5 MG, QD
     Route: 048
  5. HEPSERA [Interacting]
     Active Substance: ADEFOVIR DIPIVOXIL
     Dosage: 10 MG, QD
     Route: 048
     Dates: start: 200203
  6. HEPSERA [Interacting]
     Active Substance: ADEFOVIR DIPIVOXIL
     Dosage: 10 MG, QOD
     Route: 048
  7. GLOBULIN [Concomitant]
     Active Substance: HUMAN IMMUNOGLOBULIN G
     Indication: ANTIVIRAL PROPHYLAXIS
     Dosage: 10000 IU, UNK
     Route: 042
  8. PREDNISOLONE. [Concomitant]
     Active Substance: PREDNISOLONE
     Indication: IMMUNOSUPPRESSION
     Dosage: 20 MG, QD
     Route: 048
  9. TACROLIMUS. [Interacting]
     Active Substance: TACROLIMUS
     Indication: IMMUNOSUPPRESSION
     Dosage: UNK
     Route: 065
  10. PREDNISOLONE. [Concomitant]
     Active Substance: PREDNISOLONE
     Dosage: 2.5 MG, QD

REACTIONS (16)
  - Arthralgia [Unknown]
  - Osteomalacia [Unknown]
  - Renal failure [Unknown]
  - Muscular weakness [Unknown]
  - Drug resistance [Unknown]
  - Musculoskeletal pain [Recovering/Resolving]
  - Blood alkaline phosphatase increased [Recovering/Resolving]
  - Blood parathyroid hormone increased [Unknown]
  - Drug interaction [Unknown]
  - Renal impairment [Unknown]
  - Gait disturbance [Unknown]
  - Renal salt-wasting syndrome [Unknown]
  - Hypophosphataemia [Recovering/Resolving]
  - Bone pain [Recovering/Resolving]
  - Arthralgia [Recovering/Resolving]
  - Drug level increased [Unknown]

NARRATIVE: CASE EVENT DATE: 200311
